FAERS Safety Report 15170712 (Version 1)
Quarter: 2018Q3

REPORT INFORMATION
  Report Type: Not Available
  Country: PT (occurrence: PT)
  Receive Date: 20180720
  Receipt Date: 20180720
  Transmission Date: 20181010
  Serious: Yes (Life-Threatening, Hospitalization)
  Sender: FDA-Public Use
  Company Number: PT-ALCAMI_CORPORATION-USA-POI0581201800003

PATIENT
  Age: 59 Year
  Sex: Female

DRUGS (1)
  1. AZASAN [Suspect]
     Active Substance: AZATHIOPRINE
     Indication: CROHN^S DISEASE
     Dates: start: 201608, end: 2016

REACTIONS (13)
  - Tachycardia [Recovered/Resolved]
  - Diarrhoea [Recovered/Resolved]
  - Hypotension [Recovered/Resolved]
  - Vomiting [Recovered/Resolved]
  - Anaemia [Recovered/Resolved]
  - Petechiae [None]
  - Shock [Recovered/Resolved]
  - Dehydration [Recovered/Resolved]
  - Pyrexia [None]
  - Hyperlactacidaemia [Recovered/Resolved]
  - Haematemesis [Recovered/Resolved]
  - Drug hypersensitivity [Recovered/Resolved]
  - Haemorrhagic erosive gastritis [None]

NARRATIVE: CASE EVENT DATE: 201608
